FAERS Safety Report 5886510-9 (Version None)
Quarter: 2008Q3

REPORT INFORMATION
  Report Type: 
  Country: None (occurrence: None)
  Receive Date: 20080917
  Receipt Date: 20080912
  Transmission Date: 20090109
  Serious: Yes (Other)
  Sender: FDA-Public Use
  Company Number: US-MERCK-0807USA05720

PATIENT
  Age: 13 Year
  Sex: Male
  Weight: 41 kg

DRUGS (3)
  1. SINGULAIR [Suspect]
     Indication: RHINITIS ALLERGIC
     Route: 048
     Dates: start: 20071001, end: 20080101
  2. CLARITIN [Concomitant]
     Route: 065
  3. NASONEX [Concomitant]
     Route: 065

REACTIONS (3)
  - ANGER [None]
  - INTENTIONAL SELF-INJURY [None]
  - SUICIDAL IDEATION [None]
